FAERS Safety Report 10962267 (Version 1)
Quarter: 2015Q1

REPORT INFORMATION
  Report Type: Spontaneous
  Country: CA (occurrence: CA)
  Receive Date: 20150327
  Receipt Date: 20150327
  Transmission Date: 20150721
  Serious: Yes (Hospitalization)
  Sender: FDA-Public Use
  Company Number: CA-ASTELLAS-2015US009744

PATIENT
  Sex: Female

DRUGS (3)
  1. ADVAGRAF [Suspect]
     Active Substance: TACROLIMUS
     Route: 065
     Dates: start: 201501
  2. ADVAGRAF [Suspect]
     Active Substance: TACROLIMUS
     Indication: RENAL TRANSPLANT
     Route: 065
     Dates: start: 201304
  3. ADVAGRAF [Suspect]
     Active Substance: TACROLIMUS
     Route: 065

REACTIONS (4)
  - Gallbladder disorder [Unknown]
  - Abdominal pain upper [Unknown]
  - Dysphagia [Unknown]
  - Escherichia urinary tract infection [Unknown]
